FAERS Safety Report 24617247 (Version 1)
Quarter: 2024Q4

REPORT INFORMATION
  Report Type: Report from Study
  Country: US (occurrence: US)
  Receive Date: 20241114
  Receipt Date: 20241114
  Transmission Date: 20250115
  Serious: Yes (Other)
  Sender: JOHNSON AND JOHNSON
  Company Number: US-JNJFOC-20241038594

PATIENT
  Age: 68 Year
  Sex: Female

DRUGS (2)
  1. MACITENTAN [Suspect]
     Active Substance: MACITENTAN
     Indication: Pulmonary arterial hypertension
     Route: 048
     Dates: start: 20240918
  2. SILDENAFIL [Concomitant]
     Active Substance: SILDENAFIL

REACTIONS (8)
  - Hyperventilation [Unknown]
  - Epistaxis [Recovered/Resolved]
  - Seasonal allergy [Unknown]
  - Tachycardia [Unknown]
  - Dyspnoea exertional [Unknown]
  - Blood glucose abnormal [Unknown]
  - Dyspnoea [Unknown]
  - Nasal congestion [Unknown]

NARRATIVE: CASE EVENT DATE: 20241004
